FAERS Safety Report 21962436 (Version 3)
Quarter: 2023Q2

REPORT INFORMATION
  Report Type: Report from Study
  Country: US (occurrence: US)
  Receive Date: 20230207
  Receipt Date: 20230414
  Transmission Date: 20230721
  Serious: Yes (Death, Other)
  Sender: FDA-Public Use
  Company Number: US-JNJFOC-20230200282

PATIENT
  Age: 60 Year
  Sex: Female

DRUGS (12)
  1. REMICADE [Suspect]
     Active Substance: INFLIXIMAB
     Indication: Crohn^s disease
     Dosage: DOSAGE IS 30 AND LAST APPLICATION : 16/DEC/2020
     Route: 041
     Dates: start: 20180608
  2. REMICADE [Suspect]
     Active Substance: INFLIXIMAB
     Indication: Rheumatoid arthritis
  3. PANTOPRAZOLE [Concomitant]
     Active Substance: PANTOPRAZOLE
     Indication: Gastrointestinal disorder
     Dates: start: 2019
  4. DICYCLOMINE [Concomitant]
     Active Substance: DICYCLOMINE HYDROCHLORIDE
     Dates: start: 2019
  5. TAMSULOSIN [Concomitant]
     Active Substance: TAMSULOSIN
     Indication: Renal disorder
     Dates: start: 2019
  6. NADOLOL [Concomitant]
     Active Substance: NADOLOL
     Indication: Hypertension
     Dates: start: 2019
  7. ATORVASTATIN CALCIUM [Concomitant]
     Active Substance: ATORVASTATIN CALCIUM
     Dates: start: 2019
  8. METHOTREXATE [Concomitant]
     Active Substance: METHOTREXATE
     Dates: start: 2019
  9. METHOTREXATE [Concomitant]
     Active Substance: METHOTREXATE
     Dates: start: 2019
  10. PREDNISONE [Concomitant]
     Active Substance: PREDNISONE
     Indication: Systemic lupus erythematosus
     Dates: start: 2019
  11. FOLIC ACID [Concomitant]
     Active Substance: FOLIC ACID
     Dates: start: 2019
  12. ERGOCALCIFEROL [Concomitant]
     Active Substance: ERGOCALCIFEROL
     Dates: start: 2019

REACTIONS (6)
  - Sepsis [Unknown]
  - Systemic lupus erythematosus [Fatal]
  - Cardiovascular disorder [Fatal]
  - Oropharyngeal pain [Unknown]
  - Chest pain [Unknown]
  - Off label use [Unknown]
